FAERS Safety Report 17251227 (Version 6)
Quarter: 2021Q1

REPORT INFORMATION
  Report Type: Report from Study
  Country: US (occurrence: US)
  Receive Date: 20200109
  Receipt Date: 20210115
  Transmission Date: 20210419
  Serious: Yes (Other)
  Sender: FDA-Public Use
  Company Number: NVSC2020US002957

PATIENT
  Age: 31 Year
  Sex: Male

DRUGS (2)
  1. AFINITOR [Suspect]
     Active Substance: EVEROLIMUS
     Indication: TUBEROUS SCLEROSIS COMPLEX
  2. AFINITOR [Suspect]
     Active Substance: EVEROLIMUS
     Indication: ACUTE MYELOID LEUKAEMIA
     Dosage: 5 MG, QD
     Route: 048
     Dates: start: 20130410

REACTIONS (11)
  - Chills [Recovered/Resolved]
  - Nausea [Recovered/Resolved]
  - Pharyngeal mass [Not Recovered/Not Resolved]
  - SARS-CoV-2 test positive [Recovered/Resolved]
  - Drug level decreased [Not Recovered/Not Resolved]
  - Loss of consciousness [Recovered/Resolved]
  - Proteinuria [Not Recovered/Not Resolved]
  - Malaise [Recovered/Resolved]
  - Stomatitis [Not Recovered/Not Resolved]
  - Pyrexia [Recovered/Resolved]
  - Headache [Recovered/Resolved]

NARRATIVE: CASE EVENT DATE: 20201221
